FAERS Safety Report 14067502 (Version 1)
Quarter: 2017Q4

REPORT INFORMATION
  Report Type: Report from Study
  Country: JP (occurrence: JP)
  Receive Date: 20171010
  Receipt Date: 20171010
  Transmission Date: 20180321
  Serious: Yes (Other)
  Sender: FDA-Public Use
  Company Number: JP-VIFOR (INTERNATIONAL) INC.-VIT-2017-10252

PATIENT
  Age: 61 Year
  Sex: Male
  Weight: 61.2 kg

DRUGS (18)
  1. REGPARA [Concomitant]
     Active Substance: CINACALCET HYDROCHLORIDE
     Route: 048
  2. HISHIPHAGEN COMBINATION [Concomitant]
     Route: 042
  3. MAXACALCITOL [Concomitant]
     Active Substance: MAXACALCITOL
  4. VELPHORO [Suspect]
     Active Substance: FERRIC OXYHYDROXIDE
     Indication: HYPERPHOSPHATAEMIA
     Route: 048
     Dates: start: 20170221
  5. YOUPATCH TAPE [Concomitant]
     Dosage: 6 SHEETS
     Route: 050
  6. NICORANDIL [Concomitant]
     Active Substance: NICORANDIL
     Route: 048
     Dates: start: 20170427
  7. EFIENT [Concomitant]
     Active Substance: PRASUGREL HYDROCHLORIDE
     Route: 048
     Dates: start: 20170427
  8. NESP INJECTION PLASTIC SYRINGE [Concomitant]
     Dates: start: 20170311, end: 20170318
  9. NESP INJECTION PLASTIC SYRINGE [Concomitant]
     Dates: start: 20170325
  10. BAYASPIRIN [Concomitant]
     Active Substance: ASPIRIN
     Route: 048
     Dates: start: 20170415
  11. NOVORAPID [Concomitant]
     Active Substance: INSULIN ASPART
  12. TAKELDA COMBINATION [Concomitant]
     Route: 048
     Dates: end: 20170327
  13. KIKLIN [Concomitant]
     Active Substance: BIXALOMER
     Indication: HYPERPHOSPHATAEMIA
     Route: 048
  14. NESP INJECTION PLASTIC SYRINGE [Concomitant]
     Dates: start: 20170415
  15. AMLODIPINE BESILATE [Concomitant]
     Active Substance: AMLODIPINE BESYLATE
     Route: 048
  16. LOXONIN TAPE [Concomitant]
     Dosage: 14 SHEETS
     Route: 050
  17. NESP INJECTION PLASTIC SYRINGE [Concomitant]
     Dates: end: 20170304
  18. MICAMLO COMBINATION TABLETS AP [Concomitant]
     Route: 048

REACTIONS (1)
  - Gastritis erosive [Recovering/Resolving]

NARRATIVE: CASE EVENT DATE: 20170327
